FAERS Safety Report 7269642-2 (Version None)
Quarter: 2011Q1

REPORT INFORMATION
  Report Type: 
  Country: None (occurrence: None)
  Receive Date: 20110125
  Receipt Date: 20110111
  Transmission Date: 20110831
  Serious: Yes (Hospitalization)
  Sender: FDA-Public Use
  Company Number: IPC201101-000014

PATIENT
  Age: 72 Year
  Sex: Female

DRUGS (3)
  1. METHYLPREDNISOLONE [Suspect]
     Indication: RHEUMATOID ARTHRITIS
     Dosage: 12 MG/ DAY, ORAL
     Route: 048
  2. HYDROXYCHLOROQUINE SULFATE [Suspect]
     Indication: RHEUMATOID ARTHRITIS
     Dosage: 200 MG DAILY
  3. LEFLUNOMIDE [Suspect]
     Indication: RHEUMATOID ARTHRITIS
     Dosage: 20 MG DAILY

REACTIONS (10)
  - INSULIN C-PEPTIDE INCREASED [None]
  - CONJUNCTIVAL PALLOR [None]
  - ANAEMIA [None]
  - HYPOGLYCAEMIA [None]
  - FINGER DEFORMITY [None]
  - BLOOD INSULIN INCREASED [None]
  - SYNCOPE [None]
  - DIABETES MELLITUS [None]
  - JOINT SWELLING [None]
  - LOSS OF CONSCIOUSNESS [None]
